FAERS Safety Report 13145129 (Version 3)
Quarter: 2017Q1

REPORT INFORMATION
  Report Type: Report from Study
  Country: US (occurrence: US)
  Receive Date: 20170124
  Receipt Date: 20170316
  Transmission Date: 20170428
  Serious: Yes (Disabling)
  Sender: FDA-Public Use
  Company Number: US-REGENERON PHARMACEUTICALS, INC.-2017-10638

PATIENT

DRUGS (2)
  1. EYLEA [Suspect]
     Active Substance: AFLIBERCEPT
     Indication: MACULAR SCAR
  2. EYLEA [Suspect]
     Active Substance: AFLIBERCEPT
     Indication: NEOVASCULAR AGE-RELATED MACULAR DEGENERATION
     Dosage: LEFT EYE (OS); EVERY 4 WEEKS, MONTHLY
     Route: 031
     Dates: start: 20150417, end: 20160816

REACTIONS (2)
  - Living in residential institution [Unknown]
  - Eye irritation [Unknown]

NARRATIVE: CASE EVENT DATE: 2015
